FAERS Safety Report 5783009-5 (Version None)
Quarter: 2008Q2

REPORT INFORMATION
  Report Type: 
  Country: None (occurrence: None)
  Receive Date: 20080624
  Receipt Date: 20080619
  Transmission Date: 20081010
  Serious: Yes (Death)
  Sender: FDA-Public Use
  Company Number: AU-NOVOPROD-276584

PATIENT
  Age: 74 Year
  Sex: Female
  Weight: 50 kg

DRUGS (6)
  1. NOVOSEVEN [Suspect]
     Indication: HAEMORRHAGE
     Dosage: 3.6 MG, UNK
     Route: 042
     Dates: start: 20080508
  2. RETEPLASE [Concomitant]
  3. HEPARIN [Concomitant]
     Dates: start: 20080508
  4. ASPIRIN [Concomitant]
     Dates: start: 20080508
  5. CLOPIDOGREL [Concomitant]
  6. PROTAMINE SULFATE [Concomitant]

REACTIONS (1)
  - VENTRICULAR FIBRILLATION [None]
